FAERS Safety Report 5591522-9 (Version None)
Quarter: 2007Q4

REPORT INFORMATION
  Report Type: 
  Country: None (occurrence: None)
  Receive Date: 20071212
  Receipt Date: 20070607
  Transmission Date: 20080405
  Serious: Yes (Other)
  Sender: FDA-Public Use
  Company Number: USA-2007-0027816

PATIENT
  Sex: Female

DRUGS (7)
  1. OXYCONTIN [Suspect]
     Indication: PAIN
     Dosage: 80 MG, BID
     Dates: start: 19990101
  2. LASIX [Concomitant]
  3. CARDURA [Concomitant]
  4. ACETYLSALICYLIC ACID [Concomitant]
  5. PRILOSEC [Concomitant]
  6. PLAQUENIL [Concomitant]
  7. VITAMIN B-12 [Concomitant]

REACTIONS (2)
  - DRUG DEPENDENCE [None]
  - DRUG EFFECT DECREASED [None]
